FAERS Safety Report 5523402-9 (Version None)
Quarter: 2007Q4

REPORT INFORMATION
  Report Type: 
  Country: None (occurrence: None)
  Receive Date: 20071121
  Receipt Date: 20071031
  Transmission Date: 20080405
  Serious: Yes (Hospitalization)
  Sender: FDA-Public Use
  Company Number: IT-BRISTOL-MYERS SQUIBB COMPANY-13967401

PATIENT
  Age: 80 Year
  Sex: Male
  Weight: 80 kg

DRUGS (3)
  1. IRBESARTAN [Suspect]
     Indication: HYPERTENSION
     Dates: start: 20041129
  2. WARFARIN SODIUM [Suspect]
     Indication: PROPHYLAXIS
     Dates: start: 20041129
  3. BLINDED: PLACEBO [Suspect]
     Indication: HYPERTENSION
     Dates: start: 20041129

REACTIONS (1)
  - BRADYARRHYTHMIA [None]
